FAERS Safety Report 11397545 (Version 1)
Quarter: 2015Q3

REPORT INFORMATION
  Report Type: Report from Study
  Country: NL (occurrence: NL)
  Receive Date: 20150819
  Receipt Date: 20150819
  Transmission Date: 20151125
  Serious: No
  Sender: FDA-Public Use
  Company Number: NL-ABBVIE-15P-114-1443245-00

PATIENT
  Sex: Male

DRUGS (2)
  1. VESICARE [Concomitant]
     Active Substance: SOLIFENACIN SUCCINATE
     Indication: PRODUCT USED FOR UNKNOWN INDICATION
  2. DUODOPA [Suspect]
     Active Substance: CARBIDOPA\LEVODOPA
     Indication: PARKINSON^S DISEASE
     Dosage: MD : 4.5 CD: 6.3 EXTRA DOSE: 3.5 BY DAY AND 2.5 BY NIGHT: 4.8
     Route: 050
     Dates: start: 20080407

REACTIONS (2)
  - Bradykinesia [Not Recovered/Not Resolved]
  - Device dislocation [Not Recovered/Not Resolved]
